FAERS Safety Report 19202509 (Version 5)
Quarter: 2022Q3

REPORT INFORMATION
  Report Type: Spontaneous
  Country: JP (occurrence: JP)
  Receive Date: 20210430
  Receipt Date: 20220714
  Transmission Date: 20221026
  Serious: Yes (Other)
  Sender: FDA-Public Use
  Company Number: JP-GSKNCCC-CASE-01201624_AE-43909

PATIENT

DRUGS (4)
  1. REQUIP [Suspect]
     Active Substance: ROPINIROLE HYDROCHLORIDE
     Indication: Parkinson^s disease
     Dosage: 16 MG, QD
     Route: 048
     Dates: start: 20210422, end: 20210521
  2. TRERIEF OD [Concomitant]
     Indication: Parkinson^s disease
     Dosage: UNK
     Route: 048
     Dates: start: 20180314
  3. ROPINIROLE HYDROCHLORIDE [Concomitant]
     Active Substance: ROPINIROLE HYDROCHLORIDE
     Indication: Parkinson^s disease
     Dosage: UNK
     Route: 050
     Dates: start: 20200813, end: 20210421
  4. STALEVO TABLET [Concomitant]
     Indication: Parkinson^s disease
     Dosage: UNK
     Route: 048
     Dates: start: 20190530

REACTIONS (3)
  - Akinesia [Unknown]
  - Immobile [Unknown]
  - Gait inability [Unknown]

NARRATIVE: CASE EVENT DATE: 20210506
